FAERS Safety Report 8245096-4 (Version None)
Quarter: 2012Q1

REPORT INFORMATION
  Report Type: 
  Country: None (occurrence: None)
  Receive Date: 20120329
  Receipt Date: 20120322
  Transmission Date: 20120608
  Serious: Yes (Hospitalization)
  Sender: FDA-Public Use
  Company Number: FR-GLAXOSMITHKLINE-B0707886A

PATIENT
  Sex: Female

DRUGS (11)
  1. CITALOPRAM HYDROBROMIDE [Concomitant]
     Route: 065
  2. LEVOTHYROXINE SODIUM [Concomitant]
     Dosage: 75MCG PER DAY
     Route: 065
  3. PREVISCAN [Suspect]
     Indication: ATRIAL FLUTTER
     Dosage: 10MG PER DAY
     Route: 048
     Dates: start: 20110221
  4. FLECAINIDE ACETATE [Concomitant]
     Route: 065
  5. PRAVASTATIN [Concomitant]
     Indication: DYSLIPIDAEMIA
     Route: 065
     Dates: start: 20080101
  6. BISOPROLOL FUMARATE [Concomitant]
     Route: 065
  7. ARIXTRA [Suspect]
     Indication: ATRIAL FLUTTER
     Dosage: 7.5MG PER DAY
     Route: 058
     Dates: start: 20110221, end: 20110224
  8. LORAZEPAM [Concomitant]
     Route: 065
  9. DIGOXIN [Concomitant]
     Dosage: .125UD PER DAY
     Route: 048
  10. CORDARONE [Concomitant]
     Route: 065
  11. OMEPRAZOLE [Concomitant]
     Route: 065

REACTIONS (11)
  - MUSCULAR WEAKNESS [None]
  - FALL [None]
  - MELAENA [None]
  - BLOOD CREATININE [None]
  - HAEMATEMESIS [None]
  - HYPOTENSION [None]
  - AGITATION [None]
  - OFF LABEL USE [None]
  - GASTROINTESTINAL HAEMORRHAGE [None]
  - VOMITING [None]
  - ANAEMIA [None]
